FAERS Safety Report 10051874 (Version 2)
Quarter: 2014Q2

REPORT INFORMATION
  Report Type: Spontaneous
  Country: US (occurrence: US)
  Receive Date: 20140402
  Receipt Date: 20140527
  Transmission Date: 20141212
  Serious: Yes (Hospitalization)
  Sender: FDA-Public Use
  Company Number: US-UCBSA-116463

PATIENT
  Age: 11 Year
  Sex: Male
  Weight: 28.57 kg

DRUGS (1)
  1. CIMZIA [Suspect]
     Indication: CROHN^S DISEASE
     Dosage: STRENGTH: 200 MG; FREQUENCY: QOW
     Route: 058
     Dates: start: 20140310

REACTIONS (5)
  - Crohn^s disease [Unknown]
  - Oropharyngeal pain [Unknown]
  - Ear pain [Unknown]
  - Cough [Unknown]
  - Pyrexia [Unknown]
